FAERS Safety Report 7463740-6 (Version None)
Quarter: 2011Q1

REPORT INFORMATION
  Report Type: 
  Country: None (occurrence: None)
  Receive Date: 20110302
  Receipt Date: 20100706
  Transmission Date: 20110831
  Serious: Yes (Death, Hospitalization)
  Sender: FDA-Public Use
  Company Number: 163-21880-10040880

PATIENT
  Age: 78 Year
  Sex: Female

DRUGS (1)
  1. REVLIMID [Suspect]
     Indication: MULTIPLE MYELOMA
     Dosage: 20 MG, QD X 21 DAYS, PO
     Route: 048
     Dates: start: 20091104, end: 20100408

REACTIONS (3)
  - CARDIAC FAILURE CONGESTIVE [None]
  - PNEUMONIA [None]
  - SMALL INTESTINAL OBSTRUCTION [None]
